FAERS Safety Report 7220954-8 (Version None)
Quarter: 2011Q1

REPORT INFORMATION
  Report Type: 
  Country: None (occurrence: None)
  Receive Date: 20110112
  Receipt Date: 20110104
  Transmission Date: 20110831
  Serious: Yes (Other)
  Sender: FDA-Public Use
  Company Number: TR-GENZYME-CERZ-1001749

PATIENT
  Age: 4 Year
  Sex: Male

DRUGS (2)
  1. ZAVESCA [Suspect]
     Indication: GAUCHER'S DISEASE
     Dosage: 200 MG, QD
     Route: 042
  2. CEREZYME [Suspect]
     Indication: GAUCHER'S DISEASE
     Route: 042

REACTIONS (7)
  - DYSTONIA [None]
  - GAIT DISTURBANCE [None]
  - GRAND MAL CONVULSION [None]
  - SPEECH DISORDER [None]
  - MUSCLE TWITCHING [None]
  - STATUS EPILEPTICUS [None]
  - MYOCLONIC EPILEPSY [None]
